FAERS Safety Report 7974445-7 (Version None)
Quarter: 2011Q4

REPORT INFORMATION
  Report Type: 
  Country: None (occurrence: None)
  Receive Date: 20111213
  Receipt Date: 20111205
  Transmission Date: 20120403
  Serious: Yes (Hospitalization, Disabling)
  Sender: FDA-Public Use
  Company Number: TR-BAYER-2011-116273

PATIENT
  Age: 37 Year
  Sex: Female

DRUGS (1)
  1. YASMIN [Suspect]
     Indication: CONTRACEPTION

REACTIONS (5)
  - HAEMATOMA [None]
  - PYREXIA [None]
  - PERIPHERAL VASCULAR DISORDER [None]
  - WEIGHT INCREASED [None]
  - DEPRESSION [None]
